FAERS Safety Report 16137668 (Version 1)
Quarter: 2019Q1

REPORT INFORMATION
  Report Type: Spontaneous
  Country: TW (occurrence: TW)
  Receive Date: 20190330
  Receipt Date: 20190330
  Transmission Date: 20190418
  Serious: Yes (Other)
  Sender: FDA-Public Use
  Company Number: TW-ROCHE-2288199

PATIENT
  Age: 49 Year
  Sex: Male
  Weight: 88 kg

DRUGS (14)
  1. PREDNISOLONE. [Concomitant]
     Active Substance: PREDNISOLONE
     Route: 065
     Dates: start: 2015
  2. PREDNISOLONE. [Concomitant]
     Active Substance: PREDNISOLONE
     Route: 065
     Dates: start: 2015
  3. PREDNISOLONE. [Concomitant]
     Active Substance: PREDNISOLONE
     Route: 065
     Dates: start: 2018
  4. CERTICAN [Concomitant]
     Active Substance: EVEROLIMUS
     Indication: PROPHYLAXIS AGAINST TRANSPLANT REJECTION
     Route: 065
     Dates: start: 20160808, end: 20161013
  5. PROGRAFT [Suspect]
     Active Substance: TACROLIMUS
     Route: 065
     Dates: start: 2015
  6. PROGRAFT [Suspect]
     Active Substance: TACROLIMUS
     Route: 065
     Dates: start: 2016
  7. PROGRAFT [Suspect]
     Active Substance: TACROLIMUS
     Indication: PROPHYLAXIS AGAINST TRANSPLANT REJECTION
     Route: 065
     Dates: start: 201505
  8. PROGRAFT [Suspect]
     Active Substance: TACROLIMUS
     Route: 065
     Dates: start: 2015
  9. PREDNISOLONE. [Concomitant]
     Active Substance: PREDNISOLONE
     Route: 065
     Dates: start: 2015
  10. PROGRAFT [Suspect]
     Active Substance: TACROLIMUS
     Route: 065
     Dates: start: 2018
  11. PREDNISOLONE. [Concomitant]
     Active Substance: PREDNISOLONE
     Indication: PROPHYLAXIS AGAINST TRANSPLANT REJECTION
     Route: 065
     Dates: start: 201505
  12. CELLCEPT [Suspect]
     Active Substance: MYCOPHENOLATE MOFETIL\MYCOPHENOLATE MOFETIL HYDROCHLORIDE
     Indication: PROPHYLAXIS AGAINST TRANSPLANT REJECTION
     Route: 065
     Dates: start: 201505
  13. PROGRAFT [Suspect]
     Active Substance: TACROLIMUS
     Route: 065
     Dates: start: 2015
  14. PROGRAFT [Suspect]
     Active Substance: TACROLIMUS
     Route: 065

REACTIONS (5)
  - Graft complication [Unknown]
  - Infection [Unknown]
  - Anal abscess [Unknown]
  - Hypertension [Unknown]
  - Diabetes mellitus inadequate control [Unknown]

NARRATIVE: CASE EVENT DATE: 20170512
